FAERS Safety Report 15481492 (Version 1)
Quarter: 2018Q4

REPORT INFORMATION
  Report Type: Spontaneous
  Country: DE (occurrence: DE)
  Receive Date: 20181010
  Receipt Date: 20181010
  Transmission Date: 20190205
  Serious: Yes (Hospitalization)
  Sender: FDA-Public Use
  Company Number: DE-ROCHE-2197092

PATIENT
  Age: 42 Year
  Sex: Male

DRUGS (6)
  1. HYDROCHLOROTHIAZIDE. [Concomitant]
     Active Substance: HYDROCHLOROTHIAZIDE
     Indication: HYPERTENSION
     Route: 065
  2. TESTOSTERONE ENANTHATE. [Suspect]
     Active Substance: TESTOSTERONE ENANTHATE
     Indication: DRUG ABUSE
     Route: 030
  3. METANDIENONE [Suspect]
     Active Substance: METHANDROSTENOLONE
     Indication: DRUG ABUSE
     Route: 048
  4. TELMISARTAN. [Concomitant]
     Active Substance: TELMISARTAN
     Indication: HYPERTENSION
     Route: 065
  5. SOMATROPIN. [Suspect]
     Active Substance: SOMATROPIN
     Indication: DRUG ABUSE
     Route: 030
  6. SIMVASTATIN. [Concomitant]
     Active Substance: SIMVASTATIN
     Route: 065

REACTIONS (2)
  - Drug abuse [Unknown]
  - Focal segmental glomerulosclerosis [Not Recovered/Not Resolved]
